FAERS Safety Report 15292930 (Version 1)
Quarter: 2018Q3

REPORT INFORMATION
  Report Type: Spontaneous
  Country: US (occurrence: US)
  Receive Date: 20180806
  Receipt Date: 20180806
  Transmission Date: 20181010
  Serious: Yes (Other)
  Sender: FDA-Public Use
  Company Number: None

PATIENT
  Age: 40 Year
  Sex: Female
  Weight: 66.22 kg

DRUGS (1)
  1. MIRENA [Suspect]
     Active Substance: LEVONORGESTREL
     Dates: start: 20050429, end: 20091209

REACTIONS (7)
  - Pain [None]
  - Inflammation [None]
  - Cervix oedema [None]
  - Pelvic inflammatory disease [None]
  - Headache [None]
  - Surgery [None]
  - Uterine cervical pain [None]

NARRATIVE: CASE EVENT DATE: 20051110
